FAERS Safety Report 4335805-9 (Version None)
Quarter: 2004Q2

REPORT INFORMATION
  Report Type: 
  Country: None (occurrence: None)
  Receive Date: 20040406
  Receipt Date: 20040325
  Transmission Date: 20050107
  Serious: Yes (Hospitalization)
  Sender: FDA-Public Use
  Company Number: 234441

PATIENT
  Age: 56 Year
  Sex: Female
  Weight: 79.4 kg

DRUGS (12)
  1. NOVOLOG [Suspect]
     Indication: DIABETES MELLITUS INSULIN-DEPENDENT
     Dosage: SEE IMAGE
     Route: 058
     Dates: start: 20010101
  2. NOVOLOG [Suspect]
  3. NOVOLOG [Suspect]
  4. DIOVAN ^CIGA-GEIGY^ (VALSARTAN) [Concomitant]
  5. ESTRACE [Concomitant]
  6. PROMETRIUM [Concomitant]
  7. ACETYLSALICYLIC ACID SRT [Concomitant]
  8. SINGULAIR ^MERCK^ (MONTELUKAST SODIUM) [Concomitant]
  9. PREVACID [Concomitant]
  10. INDAPAMIDE [Concomitant]
  11. DEMADEX [Concomitant]
  12. PARADIGM INSULIN PUMP [Concomitant]

REACTIONS (7)
  - BLOOD GLUCOSE INCREASED [None]
  - CHEST PAIN [None]
  - DEVICE FAILURE [None]
  - DRUG INEFFECTIVE [None]
  - KETOACIDOSIS [None]
  - PHARMACEUTICAL PRODUCT COMPLAINT [None]
  - RENAL FAILURE [None]
